FAERS Safety Report 9131158 (Version 2)
Quarter: 2013Q2

REPORT INFORMATION
  Report Type: Spontaneous
  Country: US (occurrence: US)
  Receive Date: 20130301
  Receipt Date: 20130520
  Transmission Date: 20140414
  Serious: No
  Sender: FDA-Public Use
  Company Number: US-ENDO PHARMACEUTICALS INC.-HCDA20130059

PATIENT
  Sex: Female
  Weight: 106.05 kg

DRUGS (7)
  1. HYDROCODONE/ACETAMINOPHEN 10MG/500MG [Suspect]
     Indication: NECK PAIN
     Dosage: 10 MG/500 MG
     Route: 048
  2. HYDROCODONE/ACETAMINOPHEN 10MG/500MG [Suspect]
     Indication: BACK PAIN
     Dosage: 10 MG/500 MG
     Route: 048
  3. LISINOPRIL TABLETS [Concomitant]
     Indication: PRODUCT USED FOR UNKNOWN INDICATION
     Dosage: UNKNOWN
     Route: 048
  4. CITALOPRAM [Concomitant]
     Indication: PRODUCT USED FOR UNKNOWN INDICATION
     Dosage: UNKNOWN
     Route: 065
  5. PENTOXIFYLLINE [Concomitant]
     Indication: SKIN DISORDER
     Dosage: UNKNOWN
     Route: 065
  6. DOCUSATE SODIUM [Concomitant]
     Indication: CONSTIPATION PROPHYLAXIS
     Dosage: UNKNOWN
     Route: 065
  7. LOVASTATIN [Concomitant]
     Indication: PRODUCT USED FOR UNKNOWN INDICATION
     Dosage: UNKNOWN
     Route: 065

REACTIONS (1)
  - Drug ineffective [Unknown]
